FAERS Safety Report 8607659-3 (Version None)
Quarter: 2012Q3

REPORT INFORMATION
  Report Type: 
  Country: None (occurrence: None)
  Receive Date: 20120821
  Receipt Date: 20120814
  Transmission Date: 20120928
  Serious: Yes (Hospitalization, Other)
  Sender: FDA-Public Use
  Company Number: US-JNJFOC-20120807941

PATIENT
  Sex: Female

DRUGS (2)
  1. ORTHO TRI-CYCLEN [Suspect]
     Indication: PRODUCT USED FOR UNKNOWN INDICATION
     Route: 048
     Dates: start: 20110501, end: 20111101
  2. ORTHO TRI-CYCLEN [Suspect]
     Route: 048
     Dates: start: 20120601

REACTIONS (5)
  - MATERNAL EXPOSURE DURING PREGNANCY [None]
  - DRUG DOSE OMISSION [None]
  - ABORTION SPONTANEOUS [None]
  - PREGNANCY ON ORAL CONTRACEPTIVE [None]
  - FLUID RETENTION [None]
